FAERS Safety Report 9060491 (Version 2)
Quarter: 2013Q1

REPORT INFORMATION
  Report Type: Report from Study
  Country: JP (occurrence: JP)
  Receive Date: 20130212
  Receipt Date: 20130214
  Transmission Date: 20140127
  Serious: Yes (Hospitalization)
  Sender: FDA-Public Use
  Company Number: JP-EISAI INC-E2007-01079-CLI-JP

PATIENT
  Age: 18 None
  Sex: Male
  Weight: 26 kg

DRUGS (8)
  1. E2007 (PERAMPANEL) [Suspect]
     Indication: PARTIAL SEIZURES
     Dosage: CORE STUDY
     Route: 048
     Dates: start: 20130110, end: 20130203
  2. LANDSEN [Concomitant]
     Indication: EPILEPSY
     Route: 048
     Dates: start: 20100125, end: 20130203
  3. LANDSEN [Concomitant]
     Dosage: UNKNOWN
     Route: 048
     Dates: start: 20130210
  4. DEPAKENE-R [Concomitant]
     Indication: EPILEPSY
     Route: 048
     Dates: start: 20100603, end: 20130203
  5. DEPAKENE-R [Concomitant]
     Dosage: UNKNOWN
     Route: 048
     Dates: start: 20130207
  6. LAMICTAL [Concomitant]
     Indication: EPILEPSY
     Route: 048
     Dates: start: 20110725, end: 20130203
  7. LAMICTAL [Concomitant]
     Route: 048
     Dates: start: 20111212, end: 20130203
  8. LAMICTAL [Concomitant]
     Dosage: UNKNOWN
     Route: 048
     Dates: start: 20130207

REACTIONS (1)
  - Status epilepticus [Recovering/Resolving]
